FAERS Safety Report 17941793 (Version 1)
Quarter: 2020Q2

REPORT INFORMATION
  Report Type: Other
  Country: ES (occurrence: ES)
  Receive Date: 20200624
  Receipt Date: 20200624
  Transmission Date: 20200714
  Serious: Yes (Hospitalization, Other)
  Sender: FDA-Public Use
  Company Number: ES-INVATECH-000012

PATIENT
  Age: 40 Year
  Sex: Male

DRUGS (6)
  1. METAMIZOLE [Suspect]
     Active Substance: METAMIZOLE
     Indication: CONSTIPATION
     Dosage: 1725 MG PER DAY
  2. NAPROXEN. [Suspect]
     Active Substance: NAPROXEN
     Indication: ABDOMINAL PAIN
     Dosage: 1500 MG PER DAY
  3. DULOXETINE/DULOXETINE HYDROCHLORIDE [Suspect]
     Active Substance: DULOXETINE HYDROCHLORIDE
     Indication: DEPRESSION
     Dosage: 60 MG PER DAY
  4. DESVENLAFAXINE. [Suspect]
     Active Substance: DESVENLAFAXINE
     Indication: DEPRESSION
     Dosage: 400 MG PER DAY
  5. METAMIZOLE [Suspect]
     Active Substance: METAMIZOLE
     Indication: ABDOMINAL PAIN
     Dosage: 1725 MG PER DAY
  6. NAPROXEN. [Suspect]
     Active Substance: NAPROXEN
     Indication: CONSTIPATION
     Dosage: 1500 MG PER DAY

REACTIONS (2)
  - Overdose [Unknown]
  - Upper gastrointestinal haemorrhage [Recovering/Resolving]
